FAERS Safety Report 16941742 (Version 1)
Quarter: 2019Q4

REPORT INFORMATION
  Report Type: Spontaneous
  Country: CN (occurrence: CN)
  Receive Date: 20191021
  Receipt Date: 20191021
  Transmission Date: 20200122
  Serious: Yes (Life-Threatening, Hospitalization, Other)
  Sender: FDA-Public Use
  Company Number: CN-BEH-2019108168

PATIENT
  Age: 78 Year
  Sex: Male
  Weight: 60 kg

DRUGS (1)
  1. ALBUMIN HUMAN (INN) [Suspect]
     Active Substance: ALBUMIN HUMAN
     Indication: BLOOD ALBUMIN DECREASED
     Dosage: 50 MILLILITER, TOT
     Route: 041
     Dates: start: 20190927, end: 20190927

REACTIONS (4)
  - Hyperpyrexia [Recovering/Resolving]
  - Seizure [Recovering/Resolving]
  - Pyrexia [Recovering/Resolving]
  - Chills [Recovering/Resolving]

NARRATIVE: CASE EVENT DATE: 20190927
